FAERS Safety Report 5608673-2 (Version None)
Quarter: 2008Q1

REPORT INFORMATION
  Report Type: 
  Country: None (occurrence: None)
  Receive Date: 20080131
  Receipt Date: 20070410
  Transmission Date: 20080703
  Serious: Yes (Hospitalization, Other)
  Sender: FDA-Public Use
  Company Number: US-PFIZER INC-2007028912

PATIENT
  Sex: Female
  Weight: 83.9 kg

DRUGS (5)
  1. DILANTIN [Suspect]
     Indication: EPILEPSY
  2. PLAVIX [Concomitant]
  3. VITAMINS [Concomitant]
  4. FISH OIL [Concomitant]
  5. VITAMIN E [Concomitant]

REACTIONS (5)
  - ANAEMIA [None]
  - FATIGUE [None]
  - GINGIVAL RECESSION [None]
  - HIATUS HERNIA [None]
  - RED BLOOD CELL COUNT DECREASED [None]
